FAERS Safety Report 22289614 (Version 1)
Quarter: 2023Q2

REPORT INFORMATION
  Report Type: Spontaneous
  Country: AU (occurrence: None)
  Receive Date: 20230505
  Receipt Date: 20230505
  Transmission Date: 20230721
  Serious: Yes (Other)
  Sender: FDA-Public Use
  Company Number: 2023A099770

PATIENT
  Age: 57 Year
  Sex: Male

DRUGS (17)
  1. ESOMEPRAZOLE [Suspect]
     Active Substance: ESOMEPRAZOLE
  2. CYCLOPHOSPHAMIDE [Suspect]
     Active Substance: CYCLOPHOSPHAMIDE
  3. DOXIL [Suspect]
     Active Substance: DOXORUBICIN HYDROCHLORIDE
  4. IFOSFAMIDE [Suspect]
     Active Substance: IFOSFAMIDE
  5. SERETIDE [Suspect]
     Active Substance: FLUTICASONE PROPIONATE\SALMETEROL XINAFOATE
  6. ALLOPURINOL [Suspect]
     Active Substance: ALLOPURINOL
  7. CARBOPLATIN [Suspect]
     Active Substance: CARBOPLATIN
  8. CISPLATIN [Suspect]
     Active Substance: CISPLATIN
  9. COLCHICINE [Suspect]
     Active Substance: COLCHICINE
  10. CYTARABINE [Suspect]
     Active Substance: CYTARABINE
  11. DEXAMETHASONE [Suspect]
     Active Substance: DEXAMETHASONE
  12. ETOPOSIDE [Suspect]
     Active Substance: ETOPOSIDE
  13. MIRTAZAPINE [Suspect]
     Active Substance: MIRTAZAPINE
  14. PREDNISONE [Suspect]
     Active Substance: PREDNISONE
  15. RITUXIMAB [Suspect]
     Active Substance: RITUXIMAB
  16. VINCRISTINE SULFATE [Suspect]
     Active Substance: VINCRISTINE SULFATE
  17. DOXORUBICIN HYDROCHLORIDE [Suspect]
     Active Substance: DOXORUBICIN HYDROCHLORIDE

REACTIONS (9)
  - Central nervous system lymphoma [Unknown]
  - Diffuse large B-cell lymphoma recurrent [Unknown]
  - Diffuse large B-cell lymphoma refractory [Unknown]
  - Metastases to lung [Unknown]
  - Metastases to spleen [Unknown]
  - Headache [Unknown]
  - Lymphadenopathy [Unknown]
  - Off label use [Unknown]
  - Product use in unapproved indication [Unknown]
